FAERS Safety Report 22270228 (Version 1)
Quarter: 2023Q2

REPORT INFORMATION
  Report Type: Spontaneous
  Country: US (occurrence: None)
  Receive Date: 20230428
  Receipt Date: 20230428
  Transmission Date: 20230721
  Serious: Yes (Hospitalization)
  Sender: FDA-Public Use
  Company Number: None

PATIENT
  Age: 67 Year
  Sex: Female
  Weight: 94 kg

DRUGS (1)
  1. KEYTRUDA [Suspect]
     Active Substance: PEMBROLIZUMAB
     Dates: start: 20211101, end: 20220524

REACTIONS (4)
  - Asthenia [None]
  - Metabolic acidosis [None]
  - Encephalopathy [None]
  - Hypersensitivity [None]

NARRATIVE: CASE EVENT DATE: 20220613
